FAERS Safety Report 5844158-6 (Version None)
Quarter: 2008Q3

REPORT INFORMATION
  Report Type: 
  Country: None (occurrence: None)
  Receive Date: 20080731
  Receipt Date: 20080424
  Transmission Date: 20090109
  Serious: No
  Sender: FDA-Public Use
  Company Number: US200804006517

PATIENT
  Age: 52 Year
  Sex: Male
  Weight: 136.1 kg

DRUGS (5)
  1. BYETTA [Suspect]
     Indication: TYPE 2 DIABETES MELLITUS
     Dosage: 5 UG, 2/D, SUBCUTANEOUS ; 10 UG, 2/D, SUBCUTANEOUS
     Route: 058
  2. METFORMIN HCL [Concomitant]
  3. AMARYL [Concomitant]
  4. LISINOPRIL /USA/ (LISINOPRIL) [Concomitant]
  5. EXENATIDE PEN, DISPOSABLE DEVICE (EXENATIDE PEN)) PEN,DISPOSABLE [Concomitant]

REACTIONS (1)
  - WEIGHT FLUCTUATION [None]
